APPROVED DRUG PRODUCT: OMEPRAZOLE MAGNESIUM
Active Ingredient: OMEPRAZOLE MAGNESIUM
Strength: EQ 20MG BASE
Dosage Form/Route: TABLET, DELAYED RELEASE;ORAL
Application: A204152 | Product #001
Applicant: PERRIGO R AND D CO
Approved: Jul 30, 2015 | RLD: No | RS: No | Type: DISCN